FAERS Safety Report 16011041 (Version 1)
Quarter: 2019Q1

REPORT INFORMATION
  Report Type: Spontaneous
  Country: IT (occurrence: IT)
  Receive Date: 20190227
  Receipt Date: 20190227
  Transmission Date: 20190418
  Serious: Yes (Hospitalization, Other)
  Sender: FDA-Public Use
  Company Number: IT-ACCORD-108886

PATIENT
  Age: 16 Year
  Sex: Female

DRUGS (7)
  1. FLUCONAZOLE. [Concomitant]
     Active Substance: FLUCONAZOLE
     Indication: ANTIFUNGAL TREATMENT
     Route: 042
  2. HEPARIN [Concomitant]
     Active Substance: HEPARIN SODIUM
     Indication: ANTICOAGULANT THERAPY
     Dosage: 10 U/KG/H
     Route: 041
  3. ACETYLSALICYLIC ACID [Concomitant]
     Active Substance: ASPIRIN
     Indication: ANTIPLATELET THERAPY
     Route: 048
  4. AMPICILLIN SODIUM/SULBACTAM SODIUM [Concomitant]
     Indication: ANTIBIOTIC PROPHYLAXIS
     Route: 042
  5. CASPOFUNGIN [Concomitant]
     Active Substance: CASPOFUNGIN
     Indication: ANTIFUNGAL TREATMENT
     Dosage: UNK UNK, UNKNOWN FREQ.
     Route: 065
  6. METHYLPREDNISOLONE. [Suspect]
     Active Substance: METHYLPREDNISOLONE
     Indication: LIVER TRANSPLANT
     Dosage: INTRA-OPERATIVE BOLUS, ALSO RECEIVED INTRAVENOUS (NOT OTHERWISE SPECIFIED) 2 MG/KG INTERVAL (1 DAY)
     Route: 050
  7. TACROLIMUS. [Suspect]
     Active Substance: TACROLIMUS
     Indication: LIVER TRANSPLANT
     Dosage: 0.04 MG/KG, TWICE DAILY, ALSO RECEIVED FOR IMMUNOSUPPRESSANT DRUG THERAPY
     Route: 048

REACTIONS (9)
  - Enterococcal infection [Unknown]
  - Candida infection [Recovered/Resolved]
  - Shock haemorrhagic [Recovered/Resolved]
  - Pseudomonas infection [Recovered/Resolved]
  - Haemorrhage [Unknown]
  - Septic shock [Unknown]
  - Acute hepatic failure [Unknown]
  - Infective aneurysm [Recovered/Resolved]
  - Post procedural bile leak [Unknown]
